FAERS Safety Report 20877723 (Version 1)
Quarter: 2022Q2

REPORT INFORMATION
  Report Type: Spontaneous
  Country: US (occurrence: None)
  Receive Date: 20220526
  Receipt Date: 20220526
  Transmission Date: 20220720
  Serious: Yes (Life-Threatening)
  Sender: FDA-Public Use
  Company Number: None

PATIENT
  Age: 48 Year
  Sex: Male
  Weight: 109 kg

DRUGS (1)
  1. IODIXANOL [Suspect]
     Active Substance: IODIXANOL
     Indication: Scan with contrast
     Dosage: FREQUENCY : ONCE;?
     Route: 042
     Dates: start: 20210505, end: 20210505

REACTIONS (1)
  - Anaphylactic reaction [None]

NARRATIVE: CASE EVENT DATE: 20210505
